FAERS Safety Report 17678223 (Version 1)
Quarter: 2020Q2

REPORT INFORMATION
  Report Type: Report from Study
  Country: AE (occurrence: AE)
  Receive Date: 20200417
  Receipt Date: 20200417
  Transmission Date: 20200714
  Serious: Yes (Other)
  Sender: FDA-Public Use
  Company Number: AE-ROCHE-2581869

PATIENT
  Age: 35 Year
  Sex: Female
  Weight: 82 kg

DRUGS (3)
  1. PANADOL [Concomitant]
     Active Substance: ACETAMINOPHEN
     Indication: NASOPHARYNGITIS
     Dosage: FREQUENCY EVERY 6 HOURS AS NEEDED
     Route: 048
     Dates: start: 20200405
  2. PANADOL [Concomitant]
     Active Substance: ACETAMINOPHEN
     Indication: INFLUENZA
  3. OCREVUS [Suspect]
     Active Substance: OCRELIZUMAB
     Indication: MULTIPLE SCLEROSIS
     Route: 042
     Dates: start: 201811

REACTIONS (3)
  - Rhinorrhoea [Not Recovered/Not Resolved]
  - Muscular weakness [Not Recovered/Not Resolved]
  - Ocular hyperaemia [Not Recovered/Not Resolved]

NARRATIVE: CASE EVENT DATE: 20200403
